FAERS Safety Report 11590312 (Version 1)
Quarter: 2015Q4

REPORT INFORMATION
  Report Type: Report from Study
  Country: US (occurrence: US)
  Receive Date: 20151002
  Receipt Date: 20151002
  Transmission Date: 20160304
  Serious: Yes (Hospitalization, Other)
  Sender: FDA-Public Use
  Company Number: US-PFIZER INC-2015324308

PATIENT
  Age: 46 Year
  Sex: Female
  Weight: 63 kg

DRUGS (5)
  1. REVATIO [Suspect]
     Active Substance: SILDENAFIL CITRATE
     Indication: PULMONARY ARTERIAL HYPERTENSION
     Dosage: 20 MG, 3X/DAY
     Route: 048
     Dates: start: 20130101, end: 20150701
  2. REVATIO [Suspect]
     Active Substance: SILDENAFIL CITRATE
     Dosage: 20 MG, UNK
     Route: 048
     Dates: start: 2012, end: 20150702
  3. AMLODIPINE [Concomitant]
     Active Substance: AMLODIPINE BESYLATE
     Indication: PULMONARY HYPERTENSION
     Dosage: 5 MG, UNK
     Route: 048
     Dates: start: 201507
  4. AMBRISENTAN [Suspect]
     Active Substance: AMBRISENTAN
     Indication: PULMONARY ARTERIAL HYPERTENSION
     Dosage: 5 MG, 1X/DAY
     Route: 048
     Dates: start: 2012
  5. NICOTINE. [Concomitant]
     Active Substance: NICOTINE
     Dosage: UNK

REACTIONS (12)
  - Gait disturbance [Unknown]
  - Myelitis transverse [Recovered/Resolved]
  - Faecal incontinence [Recovered/Resolved]
  - Condition aggravated [Unknown]
  - Urinary incontinence [Recovered/Resolved]
  - Visual impairment [Unknown]
  - Anxiety [Unknown]
  - Balance disorder [Unknown]
  - Asthenia [Recovering/Resolving]
  - Hypoaesthesia [Unknown]
  - Dyspnoea [Unknown]
  - Paraesthesia [Not Recovered/Not Resolved]
